FAERS Safety Report 8482424-9 (Version None)
Quarter: 2012Q3

REPORT INFORMATION
  Report Type: 
  Country: None (occurrence: None)
  Receive Date: 20120702
  Receipt Date: 20120622
  Transmission Date: 20120928
  Serious: Yes (Other)
  Sender: FDA-Public Use
  Company Number: US-GLAXOSMITHKLINE-A0961197C

PATIENT
  Age: 26 Year
  Sex: Female
  Weight: 66.8 kg

DRUGS (1)
  1. PAXIL [Suspect]
     Indication: PRODUCT USED FOR UNKNOWN INDICATION
     Route: 067

REACTIONS (3)
  - STILLBIRTH [None]
  - EXPOSURE VIA SEMEN [None]
  - COITAL BLEEDING [None]
